FAERS Safety Report 21507501 (Version 1)
Quarter: 2022Q4

REPORT INFORMATION
  Report Type: Report from Study
  Country: KR (occurrence: KR)
  Receive Date: 20221026
  Receipt Date: 20221026
  Transmission Date: 20230113
  Serious: Yes (Other)
  Sender: FDA-Public Use
  Company Number: KR-TEVA-802012ISR

PATIENT
  Age: 80 Year
  Sex: Female
  Weight: 43 kg

DRUGS (5)
  1. AZILECT [Suspect]
     Active Substance: RASAGILINE MESYLATE
     Indication: Parkinson^s disease
     Dosage: 1 MILLIGRAM DAILY; 1 TABLET 1 A DAY, 1MG
     Route: 048
     Dates: start: 20150527
  2. AMANTADINE SULFATE [Concomitant]
     Active Substance: AMANTADINE SULFATE
     Indication: Parkinson^s disease
     Dosage: 1 TABLETS 3 TIMES A DAY, 100MG
     Route: 048
     Dates: start: 20150515
  3. PRAMIPEXOLE DIHYDROCHLORIDE [Concomitant]
     Active Substance: PRAMIPEXOLE DIHYDROCHLORIDE
     Indication: Parkinson^s disease
     Dosage: 1 TABLETS 3 TIMES A DAY, 0.25MG
     Route: 048
     Dates: start: 20150515
  4. FIMASARTAN POTASSIUM TRIHYDRATE [Concomitant]
     Active Substance: FIMASARTAN POTASSIUM TRIHYDRATE
     Indication: Hypertension
     Dosage: 1 TABLETS 1 TIMES A DAY, 60MG
     Route: 048
     Dates: start: 20150527
  5. GINKGO [Concomitant]
     Active Substance: GINKGO
     Indication: Drug therapy enhancement
     Dosage: 1 TABLETS 1 TIMES A DAY, 80MG
     Route: 048
     Dates: start: 20150527

REACTIONS (3)
  - Paralysis [Recovered/Resolved]
  - Dizziness [Recovered/Resolved]
  - Tremor [Recovered/Resolved]

NARRATIVE: CASE EVENT DATE: 20150529
